FAERS Safety Report 8312637-8 (Version None)
Quarter: 2012Q2

REPORT INFORMATION
  Report Type: 
  Country: None (occurrence: None)
  Receive Date: 20120424
  Receipt Date: 20120409
  Transmission Date: 20120825
  Serious: Yes (Disabling, Other)
  Sender: FDA-Public Use
  Company Number: FK201201079

PATIENT
  Age: 46 Year
  Sex: Female

DRUGS (3)
  1. METHYLPREDNISOLONE (MANUFACTURER UNKNOWN) (METHYLPREDNISOLONE SODIUM S [Suspect]
     Indication: VOGT-KOYANAGI-HARADA SYNDROME
     Dosage: 400;200 MG, FOR 1 DAY, DAILY X 4 DAYS,  INTRAVENOUS
     Route: 042
     Dates: start: 20080713, end: 20080716
  2. METHYLPREDNISOLONE (MANUFACTURER UNKNOWN) (METHYLPREDNISOLONE SODIUM S [Suspect]
     Indication: VOGT-KOYANAGI-HARADA SYNDROME
     Dosage: 400;200 MG, FOR 1 DAY, DAILY X 4 DAYS,  INTRAVENOUS
     Route: 042
     Dates: start: 20080712, end: 20080713
  3. PREDNISOLONE [Suspect]
     Indication: VOGT-KOYANAGI-HARADA SYNDROME
     Dosage: 100 MG, DAILY, THEN TAPERED GRADUALLY, ORAL
     Route: 048
     Dates: start: 20080717

REACTIONS (2)
  - RETINAL PIGMENT EPITHELIOPATHY [None]
  - RETINAL DETACHMENT [None]
